FAERS Safety Report 16313007 (Version 1)
Quarter: 2019Q2

REPORT INFORMATION
  Report Type: Spontaneous
  Country: US (occurrence: US)
  Receive Date: 20190515
  Receipt Date: 20190515
  Transmission Date: 20190711
  Serious: No
  Sender: FDA-Public Use
  Company Number: US-BAYER-2019-091492

PATIENT
  Age: 81 Year
  Sex: Female
  Weight: 70 kg

DRUGS (4)
  1. STATIN [NYSTATIN] [Concomitant]
     Active Substance: NYSTATIN
     Indication: PROPHYLAXIS
  2. OMEPRAZOLE. [Concomitant]
     Active Substance: OMEPRAZOLE
     Indication: GASTROOESOPHAGEAL REFLUX DISEASE
  3. BAYER ASPIRIN [Suspect]
     Active Substance: ASPIRIN
     Indication: PROPHYLAXIS
     Dosage: 1 DF, QD
     Route: 048
     Dates: start: 2001, end: 20190506
  4. MIRALAX [Suspect]
     Active Substance: POLYETHYLENE GLYCOL 3350
     Indication: GASTROINTESTINAL DISORDER
     Dosage: UNK
     Route: 048
     Dates: start: 20190507, end: 20190507

REACTIONS (3)
  - Expired product administered [None]
  - Product use in unapproved indication [None]
  - Off label use [None]
